FAERS Safety Report 6675410-2 (Version None)
Quarter: 2010Q2

REPORT INFORMATION
  Report Type: 
  Country: None (occurrence: None)
  Receive Date: 20100409
  Receipt Date: 20100329
  Transmission Date: 20101027
  Serious: Yes (Death, Life-Threatening, Other)
  Sender: FDA-Public Use
  Company Number: DE-CUBIST-2009S1000580

PATIENT
  Age: 54 Year
  Sex: Female
  Weight: 70 kg

DRUGS (1)
  1. CUBICIN [Suspect]
     Indication: GRAFT INFECTION
     Route: 042

REACTIONS (5)
  - BLOOD LACTIC ACID INCREASED [None]
  - CARDIOPULMONARY FAILURE [None]
  - ENTEROCOCCAL SEPSIS [None]
  - MALIGNANT NEOPLASM PROGRESSION [None]
  - PNEUMONIA VIRAL [None]
